FAERS Safety Report 5996801-9 (Version None)
Quarter: 2008Q4

REPORT INFORMATION
  Report Type: 
  Country: None (occurrence: None)
  Receive Date: 20081212
  Receipt Date: 20081024
  Transmission Date: 20090506
  Serious: No
  Sender: FDA-Public Use
  Company Number: US-ABBOTT-08P-163-0483892-00

PATIENT
  Sex: Male
  Weight: 81.72 kg

DRUGS (6)
  1. HUMIRA [Suspect]
     Indication: COLITIS ULCERATIVE
     Route: 058
     Dates: start: 20080814, end: 20080814
  2. HUMIRA [Suspect]
     Dates: start: 20080815, end: 20080815
  3. HUMIRA [Suspect]
     Dates: start: 20080828, end: 20080828
  4. HUMIRA [Suspect]
  5. PREDNISONE TAB [Concomitant]
     Indication: DRUG USE FOR UNKNOWN INDICATION
     Dates: end: 20081017
  6. PREDNISONE TAB [Concomitant]
     Dates: start: 20081017

REACTIONS (3)
  - COLITIS ULCERATIVE [None]
  - DIARRHOEA HAEMORRHAGIC [None]
  - DRUG INEFFECTIVE [None]
